FAERS Safety Report 26020476 (Version 1)
Quarter: 2025Q4

REPORT INFORMATION
  Report Type: Spontaneous
  Country: US (occurrence: None)
  Receive Date: 20251109
  Receipt Date: 20251109
  Transmission Date: 20260118
  Serious: Yes (Other)
  Sender: FDA-CTU
  Company Number: None

PATIENT
  Age: 63 Year
  Sex: Female
  Weight: 76.5 kg

DRUGS (8)
  1. WEGOVY [Suspect]
     Active Substance: SEMAGLUTIDE
     Indication: Weight
     Dosage: OTHER FREQUENCY : ONCE WEEKLY INJECT;?
     Route: 058
     Dates: start: 20240801
  2. NAMENDA [Concomitant]
     Active Substance: MEMANTINE HYDROCHLORIDE
  3. PROGESTERONE [Concomitant]
     Active Substance: PROGESTERONE
  4. BioTE implant (estrogen and testosterone) [Concomitant]
  5. synthroid 25 mg [Concomitant]
  6. WEGOVY [Concomitant]
     Active Substance: SEMAGLUTIDE
  7. MAGNESIUM [Concomitant]
     Active Substance: MAGNESIUM
  8. VITAMIN D NOS [Concomitant]
     Active Substance: CHOLECALCIFEROL\ERGOCALCIFEROL

REACTIONS (1)
  - Blindness unilateral [None]

NARRATIVE: CASE EVENT DATE: 20251106
